FAERS Safety Report 15096688 (Version 17)
Quarter: 2019Q4

REPORT INFORMATION
  Report Type: Report from Study
  Country: US (occurrence: US)
  Receive Date: 20180702
  Receipt Date: 20191119
  Transmission Date: 20200122
  Serious: Yes (Other)
  Sender: FDA-Public Use
  Company Number: PHEH2018US026904

PATIENT
  Age: 54 Year
  Sex: Female
  Weight: 109.3 kg

DRUGS (9)
  1. ILARIS [Suspect]
     Active Substance: CANAKINUMAB
     Indication: AUTOINFLAMMATORY DISEASE
     Dosage: 150 MG, Q4W
     Route: 058
  2. PRANDIN [Concomitant]
     Active Substance: REPAGLINIDE
     Indication: PRODUCT USED FOR UNKNOWN INDICATION
     Dosage: UNK
     Route: 065
  3. ILARIS [Suspect]
     Active Substance: CANAKINUMAB
     Indication: CRYOPYRIN ASSOCIATED PERIODIC SYNDROME
     Dosage: 150 MG, Q4W
     Route: 058
  4. ILARIS [Suspect]
     Active Substance: CANAKINUMAB
     Dosage: 150 MG, Q4W
     Route: 058
  5. ILARIS [Suspect]
     Active Substance: CANAKINUMAB
     Indication: MUCKLE-WELLS SYNDROME
     Dosage: 150 MG, QMO
     Route: 058
     Dates: start: 20131108
  6. ILARIS [Suspect]
     Active Substance: CANAKINUMAB
     Indication: FAMILIAL MEDITERRANEAN FEVER
     Dosage: 150 MG, Q4W
     Route: 058
  7. LISINOPRIL. [Concomitant]
     Active Substance: LISINOPRIL
     Indication: GASTROINTESTINAL BACTERIAL OVERGROWTH
     Route: 065
  8. INSULIN [Concomitant]
     Active Substance: INSULIN NOS
     Indication: PRODUCT USED FOR UNKNOWN INDICATION
     Dosage: 10 UNK, QN
     Route: 065
  9. AMLODIPINE [Concomitant]
     Active Substance: AMLODIPINE BESYLATE
     Indication: PRODUCT USED FOR UNKNOWN INDICATION
     Route: 065

REACTIONS (33)
  - Seizure [Recovered/Resolved with Sequelae]
  - Haemoptysis [Unknown]
  - Pain in jaw [Unknown]
  - Nausea [Recovering/Resolving]
  - Vomiting [Unknown]
  - Respiratory tract infection [Unknown]
  - Musculoskeletal stiffness [Unknown]
  - Abdominal discomfort [Unknown]
  - Dyspnoea [Unknown]
  - Headache [Recovering/Resolving]
  - Pain [Unknown]
  - Musculoskeletal chest pain [Not Recovered/Not Resolved]
  - Epilepsy [Not Recovered/Not Resolved]
  - Urinary tract infection [Unknown]
  - Body temperature decreased [Unknown]
  - Blood glucose fluctuation [Recovered/Resolved with Sequelae]
  - Back pain [Not Recovered/Not Resolved]
  - Chest pain [Unknown]
  - Urine output decreased [Unknown]
  - Breath sounds abnormal [Not Recovered/Not Resolved]
  - Nasal congestion [Recovering/Resolving]
  - Familial mediterranean fever [Unknown]
  - Hypoaesthesia [Unknown]
  - Blood glucose increased [Recovering/Resolving]
  - Angina pectoris [Unknown]
  - Hypertension [Recovered/Resolved]
  - Musculoskeletal pain [Recovering/Resolving]
  - Hyperglycaemia [Unknown]
  - Pain in extremity [Unknown]
  - Chest discomfort [Unknown]
  - Fatigue [Unknown]
  - Dizziness [Recovering/Resolving]
  - Constipation [Not Recovered/Not Resolved]

NARRATIVE: CASE EVENT DATE: 20180808
